FAERS Safety Report 6926336-8 (Version None)
Quarter: 2010Q3

REPORT INFORMATION
  Report Type: 
  Country: None (occurrence: None)
  Receive Date: 20100816
  Receipt Date: 20100816
  Transmission Date: 20110219
  Serious: Yes (Hospitalization)
  Sender: FDA-Public Use
  Company Number: None

PATIENT
  Sex: Female
  Weight: 81.6475 kg

DRUGS (2)
  1. LAMOTRIGINE [Suspect]
     Indication: BIPOLAR DISORDER
     Dosage: 1 TABLET ONCE A DAY PO
     Route: 048
     Dates: start: 20090513, end: 20090523
  2. LAMOTRIGINE [Suspect]
     Indication: BIPOLAR DISORDER
     Dosage: 1 TABLET ONCE A DAY PO
     Route: 048
     Dates: start: 20090604, end: 20090604

REACTIONS (3)
  - DYSPNOEA [None]
  - HYPOTENSION [None]
  - MENINGITIS [None]
